FAERS Safety Report 5318930-5 (Version None)
Quarter: 2007Q1

REPORT INFORMATION
  Report Type: 
  Country: None (occurrence: None)
  Receive Date: 20070202
  Receipt Date: 20070117
  Transmission Date: 20070707
  Serious: Yes (Hospitalization)
  Sender: FDA-Public Use
  Company Number: 258823

PATIENT
  Age: 49 Year
  Sex: Female
  Weight: 70.3 kg

DRUGS (3)
  1. NOVOLOG [Suspect]
     Indication: DIABETES MELLITUS INSULIN-DEPENDENT
     Dosage: 13.1 IU,QD + SLIDING SCALE, SUBCUT.-PUMP
     Route: 058
     Dates: start: 20030101, end: 20061126
  2. NOVOLOG [Suspect]
     Indication: DIABETES MELLITUS INSULIN-DEPENDENT
     Dosage: 13.1 IU,QD + SLIDING SCALE, SUBCUT.-PUMP
     Route: 058
     Dates: start: 20061128
  3. ZOCOR [Concomitant]

REACTIONS (3)
  - BLOOD GLUCOSE INCREASED [None]
  - HYPOGLYCAEMIC SEIZURE [None]
  - HYPOGLYCAEMIC UNCONSCIOUSNESS [None]
